FAERS Safety Report 9632037 (Version 2)
Quarter: 2013Q4

REPORT INFORMATION
  Report Type: Spontaneous
  Country: US (occurrence: US)
  Receive Date: 20131018
  Receipt Date: 20131216
  Transmission Date: 20140711
  Serious: No
  Sender: FDA-Public Use
  Company Number: US-TEVA-438739USA

PATIENT
  Age: 20 Year
  Sex: Female
  Weight: 86.26 kg

DRUGS (5)
  1. PARAGARD 380A [Suspect]
     Indication: CONTRACEPTION
     Route: 015
     Dates: start: 20131014, end: 20131015
  2. ALBUTEROL [Concomitant]
     Indication: ASTHMA
     Dosage: 2.5 MG/3 ML (0.083 %)
  3. PRO-AIR [Concomitant]
     Indication: ASTHMA
     Dosage: 90 MCG/ACTUATION
     Route: 055
  4. LAMICTAL [Concomitant]
     Indication: CONVULSION
     Dosage: 200 MILLIGRAM DAILY;
     Route: 048
  5. PULMICORT [Concomitant]
     Dosage: 90 MCG/ACTUATION BREATH ACTIVATED
     Route: 055

REACTIONS (9)
  - Device expulsion [Recovered/Resolved]
  - Abdominal pain [Recovered/Resolved]
  - Abdominal pain lower [Recovered/Resolved]
  - Pain [Recovered/Resolved]
  - Metrorrhagia [Unknown]
  - Urinary tract infection [Unknown]
  - Pelvic pain [Unknown]
  - Dysuria [Unknown]
  - Pollakiuria [Unknown]
